FAERS Safety Report 7064420-1 (Version None)
Quarter: 2010Q4

REPORT INFORMATION
  Report Type: 
  Country: None (occurrence: None)
  Receive Date: 20101027
  Receipt Date: 20101014
  Transmission Date: 20110411
  Serious: Yes (Hospitalization, Other)
  Sender: FDA-Public Use
  Company Number: PHEH2009US11296

PATIENT
  Sex: Male

DRUGS (5)
  1. EXJADE [Suspect]
     Indication: SICKLE CELL ANAEMIA
     Dosage: 375 MG
     Route: 048
     Dates: start: 20090312
  2. EXJADE [Suspect]
     Dosage: 375 MG, QD
     Route: 048
  3. EXJADE [Suspect]
     Dosage: NO TREATMENT
  4. EXJADE [Suspect]
     Dosage: 375 MG, QD
     Route: 048
     Dates: start: 20090812
  5. EXJADE [Suspect]
     Dosage: 500 MG
     Dates: start: 20100401

REACTIONS (18)
  - ABDOMINAL PAIN UPPER [None]
  - ALANINE AMINOTRANSFERASE INCREASED [None]
  - ALOPECIA [None]
  - ASPARTATE AMINOTRANSFERASE INCREASED [None]
  - BLOOD LACTATE DEHYDROGENASE INCREASED [None]
  - CHOLECYSTECTOMY [None]
  - CHOLELITHIASIS [None]
  - COUGH [None]
  - DIARRHOEA [None]
  - DYSURIA [None]
  - GASTROOESOPHAGEAL REFLUX DISEASE [None]
  - LIVER DISORDER [None]
  - NAUSEA [None]
  - PROTEIN URINE [None]
  - RASH GENERALISED [None]
  - SPLENECTOMY [None]
  - TIC [None]
  - VOMITING [None]
